FAERS Safety Report 15719394 (Version 1)
Quarter: 2018Q4

REPORT INFORMATION
  Report Type: Report from Study
  Country: BR (occurrence: BR)
  Receive Date: 20181213
  Receipt Date: 20181213
  Transmission Date: 20190205
  Serious: Yes (Other)
  Sender: FDA-Public Use
  Company Number: PHHY2018BR059712

PATIENT
  Age: 71 Year
  Sex: Male
  Weight: 80 kg

DRUGS (7)
  1. ENTRESTO [Suspect]
     Active Substance: SACUBITRIL\VALSARTAN
     Indication: CARDIAC DISORDER
     Dosage: 50 MG (SACUBITRIL 24 MG AND VALSARTAN 26 MG), Q12H ( AT 9:00 AM IN THE MORNING AND 21:0 AT NIGHT)
     Route: 048
     Dates: start: 201802
  2. CONCARDIO [Suspect]
     Active Substance: BISOPROLOL FUMARATE
     Indication: CARDIAC DISORDER
     Dosage: 2 DF, QD
     Route: 065
  3. ENTRESTO [Suspect]
     Active Substance: SACUBITRIL\VALSARTAN
     Indication: CARDIOMEGALY
     Dosage: 100 MG (SACUBITRIL 49 MG/ VALSARTAN 51 MG), UNK
     Route: 065
     Dates: start: 20180525
  4. CONCARDIO [Suspect]
     Active Substance: BISOPROLOL FUMARATE
     Dosage: 1 DF, QHS (AFTER HE RESTARTED USING ENTRESO SECOND TIME WITH IN AN INTERVAL OF 2 HOURS AT NIGHT)
     Route: 065
  5. ENTRESTO [Suspect]
     Active Substance: SACUBITRIL\VALSARTAN
     Dosage: 200 MG (SACUBITRIL 97 MG/ VALSARTAN 103 MG), UNK
     Route: 065
  6. ENALAPRIL [Concomitant]
     Active Substance: ENALAPRIL
     Indication: PRODUCT USED FOR UNKNOWN INDICATION
     Route: 065
  7. DIGOXIN. [Concomitant]
     Active Substance: DIGOXIN
     Indication: PRODUCT USED FOR UNKNOWN INDICATION
     Route: 065

REACTIONS (24)
  - Cough [Not Recovered/Not Resolved]
  - Depressed mood [Unknown]
  - Peripheral swelling [Unknown]
  - Asthenia [Not Recovered/Not Resolved]
  - Weight decreased [Not Recovered/Not Resolved]
  - Hypertension [Not Recovered/Not Resolved]
  - Vomiting [Not Recovered/Not Resolved]
  - Decreased appetite [Not Recovered/Not Resolved]
  - Prostatic disorder [Not Recovered/Not Resolved]
  - Pallor [Recovering/Resolving]
  - Heart rate increased [Not Recovered/Not Resolved]
  - Mobility decreased [Not Recovered/Not Resolved]
  - Swelling [Unknown]
  - Product use in unapproved indication [Unknown]
  - Contraindicated product administered [Unknown]
  - Yellow skin [Unknown]
  - Malaise [Recovering/Resolving]
  - Ageusia [Not Recovered/Not Resolved]
  - Dysgeusia [Not Recovered/Not Resolved]
  - Condition aggravated [Unknown]
  - General physical health deterioration [Not Recovered/Not Resolved]
  - Syncope [Recovering/Resolving]
  - Dyspnoea [Not Recovered/Not Resolved]
  - Headache [Not Recovered/Not Resolved]

NARRATIVE: CASE EVENT DATE: 20180318
